FAERS Safety Report 24878697 (Version 1)
Quarter: 2025Q1

REPORT INFORMATION
  Report Type: Spontaneous
  Country: US (occurrence: US)
  Receive Date: 20250123
  Receipt Date: 20250123
  Transmission Date: 20250408
  Serious: No
  Sender: LANTHEUS MEDICAL IMAGING
  Company Number: US-LANTHEUS-LMI-2023-01480

PATIENT
  Sex: Female

DRUGS (1)
  1. CARDIOLITE [Suspect]
     Active Substance: TECHNETIUM TC-99M SESTAMIBI
     Indication: Scan myocardial perfusion
     Dates: start: 20231212, end: 20231212

REACTIONS (2)
  - Urinary incontinence [Recovered/Resolved]
  - Fear [Recovered/Resolved]

NARRATIVE: CASE EVENT DATE: 20231212
